FAERS Safety Report 9519659 (Version 2)
Quarter: 2013Q3

REPORT INFORMATION
  Report Type: Report from Study
  Country: US (occurrence: US)
  Receive Date: 20130912
  Receipt Date: 20130923
  Transmission Date: 20140515
  Serious: Yes (Hospitalization)
  Sender: FDA-Public Use
  Company Number: US-ACTELION-A-NJ2013-88387

PATIENT
  Age: 48 Year
  Sex: Female

DRUGS (4)
  1. VENTAVIS [Suspect]
     Indication: PULMONARY ARTERIAL HYPERTENSION
     Dosage: 2.5 MCG, 4X DAILY
     Route: 055
  2. ADCIRCA [Concomitant]
  3. LETAIRIS [Concomitant]
  4. COUMADIN [Concomitant]

REACTIONS (3)
  - Pulmonary oedema [Recovered/Resolved]
  - Blood potassium decreased [Recovered/Resolved]
  - Diastolic dysfunction [Recovered/Resolved]
